FAERS Safety Report 9562989 (Version 2)
Quarter: 2013Q4

REPORT INFORMATION
  Report Type: Report from Study
  Country: VE (occurrence: VE)
  Receive Date: 20130927
  Receipt Date: 20131007
  Transmission Date: 20140711
  Serious: Yes (Death, Other)
  Sender: FDA-Public Use
  Company Number: VE-ABBVIE-13P-178-1152039-00

PATIENT
  Age: 73 Year
  Sex: Male
  Weight: 78 kg

DRUGS (6)
  1. ZEMPLAR [Suspect]
     Indication: RENAL FAILURE CHRONIC
     Dosage: 2,1MCG
     Route: 042
     Dates: start: 20130730, end: 20130912
  2. RECORMON [Concomitant]
     Indication: RENAL FAILURE CHRONIC
     Dosage: WEEKLY
     Route: 058
     Dates: start: 20130219, end: 20130912
  3. L-CARNITINE [Concomitant]
     Indication: RENAL FAILURE CHRONIC
     Dosage: PER WEEK
     Route: 042
     Dates: end: 20130912
  4. VITAMIN B12 [Concomitant]
     Indication: RENAL FAILURE CHRONIC
     Route: 042
     Dates: end: 20130912
  5. FOLIC ACID [Concomitant]
     Indication: RENAL FAILURE CHRONIC
     Dosage: 5 MG DAILY
     Route: 048
     Dates: end: 20130912
  6. OMEPRAZOL [Concomitant]
     Indication: RENAL FAILURE CHRONIC
     Dosage: 20 MG DAILY
     Route: 048
     Dates: end: 20130912

REACTIONS (2)
  - Myocardial infarction [Fatal]
  - Chest pain [Recovered/Resolved]
